FAERS Safety Report 7621600-1 (Version None)
Quarter: 2011Q3

REPORT INFORMATION
  Report Type: 
  Country: None (occurrence: None)
  Receive Date: 20110719
  Receipt Date: 20110711
  Transmission Date: 20111222
  Serious: Yes (Other)
  Sender: FDA-Public Use
  Company Number: FR-BAXTER-2011BH023031

PATIENT
  Age: 56 Year
  Sex: Male

DRUGS (6)
  1. PROPOFOL [Concomitant]
     Indication: GENERAL ANAESTHESIA
     Route: 065
  2. SEVOFLURANE [Suspect]
     Indication: GENERAL ANAESTHESIA
     Route: 055
  3. ACETAMINOPHEN [Concomitant]
     Indication: GENERAL ANAESTHESIA
     Route: 065
  4. KETOPROFEN [Concomitant]
     Indication: GENERAL ANAESTHESIA
     Route: 065
  5. REMIFENTANIL [Concomitant]
     Indication: GENERAL ANAESTHESIA
     Route: 065
  6. TRAMADOL HCL [Concomitant]
     Indication: GENERAL ANAESTHESIA
     Route: 065

REACTIONS (1)
  - SKIN LESION [None]
